FAERS Safety Report 24829527 (Version 3)
Quarter: 2025Q4

REPORT INFORMATION
  Report Type: Spontaneous
  Country: CA (occurrence: CA)
  Receive Date: 20250110
  Receipt Date: 20251120
  Transmission Date: 20260118
  Serious: Yes (Death, Other)
  Sender: LEO PHARM
  Company Number: None

PATIENT
  Age: 43 Year
  Sex: Female
  Weight: 68 kg

DRUGS (131)
  1. AZELAIC ACID [Suspect]
     Active Substance: AZELAIC ACID
     Indication: Product used for unknown indication
     Dosage: DOSE AND FREQUENCY: ASKED BUT UNKNOWN?FORMAT: ASKED BUT UNKNOWN
  2. CHLORHEXIDINE [Suspect]
     Active Substance: CHLORHEXIDINE
     Indication: Product used for unknown indication
     Dosage: DOSE AND FREQUENCY: ASKED BUT UNKNOWN?FORMAT: ASKED BUT UNKNOWN
     Route: 002
  3. CHLORHEXIDINE [Suspect]
     Active Substance: CHLORHEXIDINE
     Indication: Product used for unknown indication
     Dosage: DOSE AND FREQUENCY: ASKED BUT UNKNOWN?FORMAT: ASKED BUT UNKNOWN
     Route: 003
  4. BUPIVACAINE HYDROCHLORIDE [Suspect]
     Active Substance: BUPIVACAINE HYDROCHLORIDE
     Indication: Rheumatoid arthritis
     Dosage: DOSE AND FREQUENCY: ASKED BUT UNKNOWN?FORMAT: ASKED BUT UNKNOWN
  5. MYRBETRIQ [Suspect]
     Active Substance: MIRABEGRON
     Indication: Product used for unknown indication
     Dosage: 1 EVERY ONE DAYS
     Route: 048
  6. DOMPERIDONE [Suspect]
     Active Substance: DOMPERIDONE
     Indication: Product used for unknown indication
     Dosage: DOSE AND FREQUENCY: ASKED BUT UNKNOWN
  7. AIMOVIG [Suspect]
     Active Substance: ERENUMAB-AOOE
     Indication: Product used for unknown indication
     Dosage: DOSE AND FREQUENCY: ASKED BUT UNKNOWN
  8. BOTULINUM TOXIN TYPE A [Suspect]
     Active Substance: BOTULINUM TOXIN TYPE A
     Indication: Product used for unknown indication
     Dosage: DOSE AND FREQUENCY: ASKED BUT UNKNOWN?FORMAT: POWDER FOR SOLUTION
     Route: 030
  9. LYRICA [Suspect]
     Active Substance: PREGABALIN
     Indication: Product used for unknown indication
     Dosage: DOSE AND FREQUENCY: ASKED BUT UNKNOWN
  10. BETAMETHASONE [Suspect]
     Active Substance: BETAMETHASONE
     Indication: Product used for unknown indication
     Dosage: DOSE AND FREQUENCY: ASKED BUT UNKNOWN?FORMAT: ASKED BUT UNKNOWN
  11. OXYCODONE [Suspect]
     Active Substance: OXYCODONE
     Indication: Product used for unknown indication
     Dosage: DOSE AND FREQUENCY: ASKED BUT UNKNOWN?FORMAT: ASKED BUT UNKNOWN
  12. PSEUDOEPHEDRINE [Suspect]
     Active Substance: PSEUDOEPHEDRINE
     Indication: Rheumatoid arthritis
     Dosage: DOSE FREQUENCY: ASKED BUT UNKNOWN?FORMAT: ASKED BUT UNKNOWN
  13. PSEUDOEPHEDRINE [Suspect]
     Active Substance: PSEUDOEPHEDRINE
     Indication: Rheumatoid arthritis
     Dosage: DOSE FREQUENCY: ASKED BUT UNKNOWN?FORMAT: ASKED BUT UNKNOWN
  14. PSEUDOEPHEDRINE [Suspect]
     Active Substance: PSEUDOEPHEDRINE
     Indication: Rheumatoid arthritis
     Dosage: DOSE FREQUENCY: ASKED BUT UNKNOWN?FORMAT: ASKED BUT UNKNOWN
  15. PANTOPRAZOLE [Suspect]
     Active Substance: PANTOPRAZOLE
     Indication: Product used for unknown indication
     Dosage: DOSE AND FREQUENCY: ASKED BUT UNKNOWN?FORMAT: ASKED BUT UNKNOWN
     Route: 016
  16. PANTOPRAZOLE [Suspect]
     Active Substance: PANTOPRAZOLE
     Indication: Product used for unknown indication
     Dosage: DOSE AND FREQUENCY: ASKED BUT UNKNOWN?FORMAT: ASKED BUT UNKNOWN
     Route: 005
  17. PANTOPRAZOLE [Suspect]
     Active Substance: PANTOPRAZOLE
     Indication: Product used for unknown indication
     Dosage: TABLET (DELYED-RELEASE)
  18. AZATHIOPRINE [Suspect]
     Active Substance: AZATHIOPRINE
     Indication: Rheumatoid arthritis
     Dosage: DOSE AND FREQUENCY: ASKED BUT UNKNOWN?FORMAT: ASKED BUT UNKNOWN
     Route: 016
  19. AZATHIOPRINE [Suspect]
     Active Substance: AZATHIOPRINE
     Indication: Rheumatoid arthritis
     Dosage: DOSE AND FREQUENCY: ASKED BUT UNKNOWN?FORMAT: ASKED BUT UNKNOWN
     Route: 048
  20. NAPROXEN SODIUM [Suspect]
     Active Substance: NAPROXEN SODIUM
     Indication: Rheumatoid arthritis
     Dosage: 500.0 MG 2 EVERY 1 DAYS?FORMAT: ASKED BUT UNKNOWN
  21. CANDESARTAN [Suspect]
     Active Substance: CANDESARTAN
     Indication: Rheumatoid arthritis
     Dosage: DOSE AND FREQUENCY: ASKED BUT UNKNOWN?FORMAT: ASKED BUT UNKNOWN
  22. CANDESARTAN [Suspect]
     Active Substance: CANDESARTAN
     Indication: Migraine
     Dosage: DOSE AND FREQUENCY: ASKED BUT UNKNOWN?FORMAT: ASKED BUT UNKNOWN
  23. DESOXIMETASONE [Suspect]
     Active Substance: DESOXIMETASONE
     Indication: Rheumatoid arthritis
     Dosage: DOSE AND FREQUENCY: ASKED BUT UNKNOWN?FORMAT: ASKED BUT UNKNOWN
     Route: 048
  24. OTEZLA [Suspect]
     Active Substance: APREMILAST
     Indication: Product used for unknown indication
     Dosage: 2 MG EVERY 1 DAYS?FORMAT: ASKED BUT UNKNOWN
  25. OTEZLA [Suspect]
     Active Substance: APREMILAST
     Indication: Product used for unknown indication
     Dosage: DOSE FREQUENCY: ASKED BUT UNKNOWN?FORMAT: ASKED BUT UNKNOWN
  26. ALENDRONIC ACID [Suspect]
     Active Substance: ALENDRONIC ACID
     Indication: Rheumatoid arthritis
     Dosage: DOSE AND FREQUENCY: ASKED BUT UNKNOWN?FORMAT: ASKED BUT UNKNOWN
  27. ALENDRONIC ACID [Suspect]
     Active Substance: ALENDRONIC ACID
     Indication: Rheumatoid arthritis
     Dosage: DOSE AND FREQUENCY: ASKED BUT UNKNOWN?FORMAT: ASKED BUT UNKNOWN
     Route: 016
  28. CORTISONE [Suspect]
     Active Substance: CORTISONE
     Indication: Rheumatoid arthritis
     Dosage: DOSE AND FREQUENCY: ASKED BUT UNKNOWN?FORMAT: ASKED BUT UNKNOWN
  29. PREDNISONE [Suspect]
     Active Substance: PREDNISONE
     Indication: Rheumatoid arthritis
     Dosage: DOSE FREQUENCY: ASKED BUT UNKNOWN?FORMAT: ASKED BUT UNKNOWN
     Route: 048
  30. PREDNISONE [Suspect]
     Active Substance: PREDNISONE
     Indication: Rheumatoid arthritis
     Dosage: DOSE FREQUENCY: ASKED BUT UNKNOWN?FORMAT: ASKED BUT UNKNOWN
     Route: 048
  31. PREDNISONE [Suspect]
     Active Substance: PREDNISONE
     Indication: Rheumatoid arthritis
     Dosage: DOSE FREQUENCY: ASKED BUT UNKNOWN?FORMAT: ASKED BUT UNKNOWN
     Route: 048
  32. SOLU-MEDROL [Suspect]
     Active Substance: METHYLPREDNISOLONE SODIUM SUCCINATE
     Indication: Product used for unknown indication
     Dosage: DOSE AND FREQUENCY: ASKED BUT UNKNOWN?FORMAT: ASKED BUT UNKNOWN
     Route: 048
  33. CIMZIA [Suspect]
     Active Substance: CERTOLIZUMAB PEGOL
     Indication: Rheumatoid arthritis
     Dosage: DOSE FREQUENCY: ASKED BUT UNKNOWN
     Route: 058
  34. CIMZIA [Suspect]
     Active Substance: CERTOLIZUMAB PEGOL
     Indication: Rheumatoid arthritis
     Dosage: DOSE FREQUENCY: ASKED BUT UNKNOWN
  35. CIMZIA [Suspect]
     Active Substance: CERTOLIZUMAB PEGOL
     Indication: Rheumatoid arthritis
     Dosage: DOSE FREQUENCY: ASKED BUT UNKNOWN
  36. CIMZIA [Suspect]
     Active Substance: CERTOLIZUMAB PEGOL
     Indication: Rheumatoid arthritis
     Dosage: DOSE TEXT:?DOSE AND FREQUENCY: ASKED BUT UNKNOWN
     Route: 058
  37. CIMZIA [Suspect]
     Active Substance: CERTOLIZUMAB PEGOL
     Indication: Psoriasis
     Dosage: DOSE FREQUENCY: ASKED BUT UNKNOWN
     Route: 058
  38. CIMZIA [Suspect]
     Active Substance: CERTOLIZUMAB PEGOL
     Indication: Psoriasis
     Dosage: DOSE FREQUENCY: ASKED BUT UNKNOWN
  39. CIMZIA [Suspect]
     Active Substance: CERTOLIZUMAB PEGOL
     Indication: Psoriasis
     Dosage: DOSE FREQUENCY: ASKED BUT UNKNOWN
  40. CIMZIA [Suspect]
     Active Substance: CERTOLIZUMAB PEGOL
     Indication: Psoriasis
     Dosage: DOSE TEXT:?DOSE AND FREQUENCY: ASKED BUT UNKNOWN
     Route: 058
  41. ATOMOXETINE [Suspect]
     Active Substance: ATOMOXETINE
     Indication: Product used for unknown indication
     Dosage: 1.0 DOSAGE FORMS?FORMAT: ASKED BUT UNKNOWN
  42. CALCIUM GLUBIONATE [Suspect]
     Active Substance: CALCIUM GLUBIONATE
     Indication: Rheumatoid arthritis
     Dosage: DOSE AND FREQUENCY: ASKED BUT UNKNOWN?FORMAT: ASKED BUT UNKNOWN
  43. DICLOFENAC [Suspect]
     Active Substance: DICLOFENAC
     Indication: Product used for unknown indication
     Dosage: DOSE AND FREQUENCY: ASKED BUT UNKNOWN?FORMAT: ASKED BUT UNKNOWN
     Route: 031
  44. DICLOFENAC [Suspect]
     Active Substance: DICLOFENAC
     Indication: Product used for unknown indication
     Dosage: DOSE FREQUENCY: ASKED BUT UNKNOWN?FORMAT: ASKED BUT UNKNOWN
  45. TOFACITINIB [Suspect]
     Active Substance: TOFACITINIB
     Indication: Rheumatoid arthritis
     Dosage: DOSE AND FREQUENCY: ASKED BUT UNKNOWN?FORMAT: ASKED BUT UNKNOWN
  46. VASCEPA [Concomitant]
     Active Substance: ICOSAPENT ETHYL
     Indication: Product used for unknown indication
     Dosage: DOSE, DOSAGE FORM, FREQ, ROUTE OF ADMIN, THERAPY DURATION AND INDICATION: ASKED BUT UNKNOWN
  47. SIMPONI [Suspect]
     Active Substance: GOLIMUMAB
     Indication: Rheumatoid arthritis
     Dosage: SOLUTION SUBCUTANEOUS?DOSE AND FREQUENCY: ASKED BUT UNKNOWN
     Route: 058
  48. ETANERCEPT [Suspect]
     Active Substance: ETANERCEPT
     Indication: Rheumatoid arthritis
     Dosage: DOSE FREQUENCY: ASKED BUT UNKNOWN?FORMAT: ASKED BUT UNKNOWN
     Route: 058
  49. LAMOTRIGINE [Suspect]
     Active Substance: LAMOTRIGINE
     Indication: Product used for unknown indication
     Dosage: DOSE FREQUENCY: ASKED BUT UNKNOWN?FORMAT: ASKED BUT UNKNOWN
  50. LAMOTRIGINE [Suspect]
     Active Substance: LAMOTRIGINE
     Indication: Product used for unknown indication
     Dosage: DOSE FREQUENCY: ASKED BUT UNKNOWN?FORMAT: ASKED BUT UNKNOWN
     Route: 048
  51. TRAZODONE [Suspect]
     Active Substance: TRAZODONE HYDROCHLORIDE
     Indication: Product used for unknown indication
     Dosage: DOSE AND FREQUENCY: ASKED BUT UNKNOWN
  52. ACETAMINOPHEN [Suspect]
     Active Substance: ACETAMINOPHEN
     Indication: Rheumatoid arthritis
     Dosage: DOSE FREQUENCY: ASKED BUT UNKNOWN
  53. RANITIDINE [Suspect]
     Active Substance: RANITIDINE
     Indication: Product used for unknown indication
     Dosage: DOSE FREQUENCY: ASKED BUT UNKNOWN
     Route: 058
  54. RANITIDINE [Suspect]
     Active Substance: RANITIDINE
     Indication: Product used for unknown indication
     Dosage: DOSE AND FREQUENCY: ASKED BUT UNKNOWN
     Route: 042
  55. CETIRIZINE [Suspect]
     Active Substance: CETIRIZINE HYDROCHLORIDE
     Indication: Rheumatoid arthritis
     Dosage: DOSE AND FREQUENCY: ASKED BUT UNKNOWN?FORMAT: ASKED BUT UNKNOWN
     Route: 048
  56. CODEINE [Concomitant]
     Active Substance: CODEINE
     Indication: Product used for unknown indication
     Dosage: DOSE AND FREQUENCY: ASKED BUT UNKNOWN?FORMAT: ASKED BUT UNKNOWN
  57. NUCALA [Suspect]
     Active Substance: MEPOLIZUMAB
     Indication: Product used for unknown indication
     Dosage: DOSE AND FREQUENCY: ASKED BUT UNKNOWN?FORMAT: ASKED BUT UNKNOWN
  58. CHOLECALCIFEROL [Suspect]
     Active Substance: CHOLECALCIFEROL
     Indication: Product used for unknown indication
     Dosage: DOSE AND FREQUENCY: ASKED BUT UNKNOWN?FORMAT: ASKED BUT UNKNOWN
     Route: 016
  59. ZESTRIL [Concomitant]
     Active Substance: LISINOPRIL
     Indication: Product used for unknown indication
     Dosage: DOSE AND FREQUENCY: ASKED BUT UNKNOWN?FORMAT: ASKED BUT UNKNOWN
  60. DOXYCYCLINE HYCLATE [Suspect]
     Active Substance: DOXYCYCLINE HYCLATE
     Indication: Product used for unknown indication
     Dosage: DOSE FREQUENCY: ASKED BUT UNKNOWN?FORMAT: ASKED BUT UNKNOWN
  61. CYCLOBENZAPRINE [Suspect]
     Active Substance: CYCLOBENZAPRINE
     Indication: Product used for unknown indication
     Dosage: DOSE FREQUENCY: ASKED BUT UNKNOW
  62. PREDNISONE [Suspect]
     Active Substance: PREDNISONE
     Indication: Rheumatoid arthritis
     Dosage: DOSE FREQUENCY: ASKED BUT UNKNOWN
  63. METHOTREXATE [Suspect]
     Active Substance: METHOTREXATE
     Indication: Rheumatoid arthritis
     Dosage: DOSE FREQUENCY: ASKED BUT UNKNOWN?FORMAT: ASKED BUT UNKNOWN
  64. METHOTREXATE [Suspect]
     Active Substance: METHOTREXATE
     Indication: Rheumatoid arthritis
     Dosage: DOSE FREQUENCY: ASKED BUT UNKNOWN
     Route: 048
  65. METHOTREXATE [Suspect]
     Active Substance: METHOTREXATE
     Indication: Rheumatoid arthritis
     Dosage: FORMAT: ASKED BUT UNKNOWN
  66. METHOTREXATE [Suspect]
     Active Substance: METHOTREXATE
     Indication: Rheumatoid arthritis
     Dosage: DOSE AND FREQUENCY: ASKED BUT UNKNOWN
     Route: 016
  67. METHOTREXATE [Suspect]
     Active Substance: METHOTREXATE
     Indication: Rheumatoid arthritis
     Dosage: DOSE AND FREQUENCY: ASKED BUT UNKNOWN?FORMAT: ASKED BUT UNKNOWN
     Route: 058
  68. METHOTREXATE [Suspect]
     Active Substance: METHOTREXATE
     Indication: Rheumatoid arthritis
     Dosage: DOSE FREQUENCY: ASKED BUT UNKNOWN
     Route: 048
  69. LEFLUNOMIDE [Suspect]
     Active Substance: LEFLUNOMIDE
     Indication: Rheumatoid arthritis
  70. LEFLUNOMIDE [Suspect]
     Active Substance: LEFLUNOMIDE
     Indication: Rheumatoid arthritis
  71. HYDROMORPHONE [Suspect]
     Active Substance: HYDROMORPHONE
     Indication: Product used for unknown indication
     Dosage: DOSE AND FREQUENCY: ASKED BUT UNKNOWN?FORMAT: ASKED BUT UNKNOWN
  72. BERINERT [Suspect]
     Active Substance: HUMAN C1-ESTERASE INHIBITOR
     Indication: Product used for unknown indication
     Dosage: DOSE AND FREQUENCY: ASKED BUT UNKNOWN?FORMAT: ASKED BUT UNKNOWN
  73. HUMIRA [Suspect]
     Active Substance: ADALIMUMAB
     Indication: Rheumatoid arthritis
     Dosage: DOSE FREQUENCY: ASKED BUT UNKNOWN?FORMAT: ASKED BUT UNKNOWN
  74. HUMIRA [Suspect]
     Active Substance: ADALIMUMAB
     Indication: Rheumatoid arthritis
     Dosage: DOSE FREQUENCY: ASKED BUT UNKNOWN?FORMAT: ASKED BUT UNKNOWN
     Route: 058
  75. FLUTICASONE [Suspect]
     Active Substance: FLUTICASONE
     Indication: Product used for unknown indication
     Dosage: DOSE AND FREQUENCY: ASKED BUT UNKNOWN?FORMAT: ASKED BUT UNKNOWN
  76. MESALAMINE [Suspect]
     Active Substance: MESALAMINE
     Indication: Crohn^s disease
     Dosage: DOSE AND FREQUENCY: ASKED BUT UNKNOWN?FORMAT: ASKED BUT UNKNOWN
  77. ATIVAN [Concomitant]
     Active Substance: LORAZEPAM
     Indication: Product used for unknown indication
     Dosage: DOSE AND FREQUENCY: ASKED BUT UNKNOWN?FORMAT: ASKED BUT UNKNOWN
  78. PERCOCET [Suspect]
     Active Substance: ACETAMINOPHEN\OXYCODONE HYDROCHLORIDE
     Indication: Product used for unknown indication
     Dosage: DOSE FREQUENCY: ASKED BUT UNKNOWN
  79. FOLIC ACID [Suspect]
     Active Substance: FOLIC ACID
     Indication: Rheumatoid arthritis
     Dosage: DOSE AND FREQUENCY: ASKED BUT UNKNOWN?FORMAT: ASKED BUT UNKNOWN
  80. RITUXIMAB [Suspect]
     Active Substance: RITUXIMAB
     Indication: Rheumatoid arthritis
     Dosage: DOSE AND FREQUENCY: ASKED BUT UNKNOWN?FORMAT: ASKED BUT UNKNOWN
     Route: 042
  81. PHTHALYLSULFATHIAZOLE [Suspect]
     Active Substance: PHTHALYLSULFATHIAZOLE
     Indication: Rheumatoid arthritis
     Dosage: DOSE FREQUENCY: ASKED BUT UNKNOWN?FORMAT: ASKED BUT UNKNOWN
  82. PHTHALYLSULFATHIAZOLE [Suspect]
     Active Substance: PHTHALYLSULFATHIAZOLE
     Indication: Rheumatoid arthritis
     Dosage: DOSE FREQUENCY: ASKED BUT UNKNOWN?FORMAT: ASKED BUT UNKNOWN
  83. PHTHALYLSULFATHIAZOLE [Suspect]
     Active Substance: PHTHALYLSULFATHIAZOLE
     Indication: Rheumatoid arthritis
     Dosage: DOSE AND FREQUENCY: ASKED BUT UNKNOWN?FORMAT: ASKED BUT UNKNOWN
  84. TRETINOIN [Suspect]
     Active Substance: TRETINOIN
     Indication: Product used for unknown indication
     Dosage: DOSE AND FREQUENCY: ASKED BUT UNKNOWN?FORMAT: ASKED BUT UNKNOWN
  85. CORTISONE ACETATE [Suspect]
     Active Substance: CORTISONE ACETATE
     Indication: Rheumatoid arthritis
     Dosage: DOSE FREQUENCY: ASKED BUT UNKNOWN
  86. VITAMIN C [Suspect]
     Active Substance: ASCORBIC ACID
     Indication: Product used for unknown indication
     Dosage: DOSE AND FREQUENCY: ASKED BUT UNKNOWN?FORMAT: ASKED BUT UNKNOWN
  87. ORENCIA [Suspect]
     Active Substance: ABATACEPT
     Indication: Rheumatoid arthritis
     Dosage: DOSE AND FREQUENCY: ASKED BUT UNKNOWN?FORMAT: ASKED BUT UNKNOWN
     Route: 042
  88. ORENCIA [Suspect]
     Active Substance: ABATACEPT
     Indication: Rheumatoid arthritis
     Dosage: DOSE FREQUENCY: ASKED BUT UNKNOWN
     Route: 058
  89. ACTEMRA [Suspect]
     Active Substance: TOCILIZUMAB
     Indication: Product used for unknown indication
     Dosage: DOSE AND FREQUENCY: ASKED BUT UNKNOWN?FORMAT: ASKED BUT UNKNOWN
     Route: 042
  90. ACTEMRA [Suspect]
     Active Substance: TOCILIZUMAB
     Indication: Product used for unknown indication
     Dosage: DOSE FREQUENCY: ASKED BUT UNKNOWN?FORMAT: ASKED BUT UNKNOWN
     Route: 058
  91. ACTEMRA [Suspect]
     Active Substance: TOCILIZUMAB
     Indication: Product used for unknown indication
     Dosage: DOSE FREQUENCY: ASKED BUT UNKNOWN?FORMAT: ASKED BUT UNKNOWN
     Route: 058
  92. ACTEMRA [Suspect]
     Active Substance: TOCILIZUMAB
     Indication: Product used for unknown indication
     Dosage: DOSE AND FREQUENCY: ASKED BUT UNKNOWN?FORMAT: ASKED BUT UNKNOWN
  93. ACTEMRA [Suspect]
     Active Substance: TOCILIZUMAB
     Indication: Product used for unknown indication
     Dosage: DOSE FREQUENCY: ASKED BUT UNKNOWN?FORMAT: ASKED BUT UNKNOWN
     Route: 058
  94. HYDROXYCHLOROQUINE [Suspect]
     Active Substance: HYDROXYCHLOROQUINE
     Indication: Systemic lupus erythematosus
     Dosage: DOSE FREQUENCY: ASKED BUT UNKNOWN?FORMAT: ASKED BUT UNKNOWN
  95. HYDROXYCHLOROQUINE [Suspect]
     Active Substance: HYDROXYCHLOROQUINE
     Indication: Rheumatoid arthritis
     Dosage: DOSE FREQUENCY: ASKED BUT UNKNOWN?FORMAT: ASKED BUT UNKNOWN
  96. QUETIAPINE [Suspect]
     Active Substance: QUETIAPINE
     Indication: Product use in unapproved indication
     Dosage: DOSE AND FREQUENCY: ASKED BUT UNKNOWN
  97. CALCIUM [Suspect]
     Active Substance: CALCIUM
     Indication: Product used for unknown indication
     Dosage: DOSE AND FREQUENCY: ASKED BUT UNKNOWN?FORMAT: ASKED BUT UNKNOWN
  98. COSENTYX [Suspect]
     Active Substance: SECUKINUMAB
     Indication: Product used for unknown indication
     Dosage: DOSE AND FREQUENCY: ASKED BUT UNKNOWN?FORMAT: ASKED BUT UNKNOWN
  99. CLIOQUINOL\FLUMETHASONE [Suspect]
     Active Substance: CLIOQUINOL\FLUMETHASONE
     Indication: Rheumatoid arthritis
     Dosage: DOSE AND FREQUENCY: ASKED BUT UNKNOWN?FORMAT: ASKED BUT UNKNOWN
  100. HYDROCORTISONE [Suspect]
     Active Substance: HYDROCORTISONE
     Indication: Rheumatoid arthritis
     Dosage: DOSE FREQUENCY: ASKED BUT UNKNOWN?FORMAT: ASKED BUT UNKNOWN
     Route: 048
  101. RAMIPRIL [Suspect]
     Active Substance: RAMIPRIL
     Indication: Rheumatoid arthritis
     Route: 016
  102. TOPIRAMATE [Suspect]
     Active Substance: TOPIRAMATE
     Indication: Product used for unknown indication
     Dosage: 25.0 MG 1 EVERY 1 DAYS?FORMAT: ASKED BUT UNKNOWN
  103. TOPIRAMATE [Suspect]
     Active Substance: TOPIRAMATE
     Indication: Product used for unknown indication
     Dosage: 3.0 MG 1 EVERY 1 DAYS?FORMAT: ASKED BUT UNKNOWN
  104. LORAZEPAM [Concomitant]
     Active Substance: LORAZEPAM
     Indication: Product used for unknown indication
     Dosage: DOSE AND FREQUENCY: ASKED BUT UNKNOWN?FORMAT: ASKED BUT UNKNOWN
  105. FETZIMA [Suspect]
     Active Substance: LEVOMILNACIPRAN HYDROCHLORIDE
     Indication: Product used for unknown indication
     Dosage: DOSE AND FREQUENCY: ASKED BUT UNKNOWN?FORMAT: ASKED BUT UNKNOWN
  106. CELECOXIB [Suspect]
     Active Substance: CELECOXIB
     Indication: Rheumatoid arthritis
     Dosage: 2 EVERY 1
  107. CELECOXIB [Suspect]
     Active Substance: CELECOXIB
     Indication: Rheumatoid arthritis
     Dosage: 1 EVERY 1 DAYS
  108. CELECOXIB [Suspect]
     Active Substance: CELECOXIB
     Indication: Rheumatoid arthritis
     Dosage: DOSE FREQUENCY: ASKED BUT UNKNOWN
  109. BUPRENORPHINE [Suspect]
     Active Substance: BUPRENORPHINE
     Indication: Product used for unknown indication
     Dosage: DOSE AND FREQUENCY: ASKED BUT UNKNOWN?FORMAT: ASKED BUT UNKNOWN
  110. REMICADE [Suspect]
     Active Substance: INFLIXIMAB
     Indication: Rheumatoid arthritis
     Dosage: POWDER FOR?SOLUTION?INTRAVENOUS?DOSE FREQUENCY: ASKED BUT UNKNOWN
  111. REMICADE [Suspect]
     Active Substance: INFLIXIMAB
     Indication: Rheumatoid arthritis
     Dosage: POWDER FOR?SOLUTION?INTRAVENOUS?DOSE FREQUENCY: ASKED BUT UNKNOWN
     Route: 042
  112. REMICADE [Suspect]
     Active Substance: INFLIXIMAB
     Indication: Rheumatoid arthritis
     Dosage: POWDER FOR?SOLUTION?INTRAVENOUS?DOSE FREQUENCY: ASKED BUT UNKNOWN
     Route: 042
  113. REMICADE [Suspect]
     Active Substance: INFLIXIMAB
     Indication: Rheumatoid arthritis
     Dosage: POWDER FOR SOLUTION?INTRAVENOUS?DOSE FREQUENCY: ASKED BUT UNKNOWN
  114. MINOCYCLINE [Suspect]
     Active Substance: MINOCYCLINE HYDROCHLORIDE
     Indication: Rheumatoid arthritis
     Dosage: DOSE AND FREQUENCY: ASKED BUT UNKNOWN?FORMAT: ASKED BUT UNKNOWN
  115. KEVZARA [Suspect]
     Active Substance: SARILUMAB
     Indication: Rheumatoid arthritis
     Dosage: DOSE AND FREQUENCY: ASKED BUT UNKNOWN?FORMAT: ASKED BUT UNKNOWN
  116. PHENYLEPHRINE HYDROCHLORIDE [Suspect]
     Active Substance: PHENYLEPHRINE HYDROCHLORIDE
     Indication: Product used for unknown indication
     Dosage: DOSE AND FREQUENCY: ASKED BUT UNKNOWN?FORMAT: ASKED BUT UNKNOWN
  117. SIRUKUMAB [Suspect]
     Active Substance: SIRUKUMAB
     Indication: Product used for unknown indication
     Dosage: DOSE AND FREQUENCY: ASKED BUT UNKNOWN?FORMAT: ASKED BUT UNKNOWN
  118. ALFACALCIDOL [Suspect]
     Active Substance: ALFACALCIDOL
     Indication: Product used for unknown indication
     Dosage: DOSE AND FREQUENCY: ASKED BUT UNKNOWN?FORMAT: ASKED BUT UNKNOWN
  119. CETIRIZINE HYDROCHLORIDE\PSEUDOEPHEDRINE HYDROCHLORIDE [Suspect]
     Active Substance: CETIRIZINE HYDROCHLORIDE\PSEUDOEPHEDRINE HYDROCHLORIDE
     Indication: Rheumatoid arthritis
     Dosage: DOSE FREQUENCY: ASKED BUT UNKNOWN
  120. MYCOPHENOLATE MOFETIL [Suspect]
     Active Substance: MYCOPHENOLATE MOFETIL
     Indication: Product used for unknown indication
     Dosage: DOSE AND FREQUENCY: ASKED BUT UNKNOWN?FORMAT: ASKED BUT UNKNOWN
  121. ERGOCALCIFEROL [Suspect]
     Active Substance: ERGOCALCIFEROL
     Indication: Product used for unknown indication
     Dosage: DOSE AND FREQUENCY: ASKED BUT UNKNOWN?FORMAT: ASKED BUT UNKNOWN
  122. USTEKINUMAB [Suspect]
     Active Substance: USTEKINUMAB
     Indication: Rheumatoid arthritis
     Dosage: DOSE FREQUENCY: ASKED BUT UNKNOWN
     Route: 058
  123. SULFASALAZINE [Suspect]
     Active Substance: SULFASALAZINE
     Indication: Rheumatoid arthritis
     Dosage: 1000.0 MG 2 EVERY 1 DAYS?FORMAT: ASKED BUT UNKNOWN
     Route: 048
  124. SULFASALAZINE [Suspect]
     Active Substance: SULFASALAZINE
     Indication: Rheumatoid arthritis
     Dosage: 300 MG 1 EVERY 1 DAYS?FORMAT: ASKED BUT UNKNOWN
  125. SULFASALAZINE [Suspect]
     Active Substance: SULFASALAZINE
     Indication: Rheumatoid arthritis
     Dosage: DOSE FREQUENCY: ASKED BUT UNKNOWN?FORMAT: ASKED BUT UNKNOWN
     Route: 058
  126. SULFASALAZINE [Suspect]
     Active Substance: SULFASALAZINE
     Indication: Rheumatoid arthritis
     Dosage: DOSE FREQUENCY: ASKED BUT UNKNOWN?FORMAT: ASKED BUT UNKNOWN
     Route: 058
  127. SULFASALAZINE [Suspect]
     Active Substance: SULFASALAZINE
     Indication: Rheumatoid arthritis
     Dosage: DOSE AND FREQUENCY: ASKED BUT UNKNOWN?FORMAT: ASKED BUT UNKNOWN
     Route: 058
  128. SULFASALAZINE [Suspect]
     Active Substance: SULFASALAZINE
     Indication: Rheumatoid arthritis
     Dosage: DOSE FREQUENCY: ASKED BUT UNKNOWN?FORMAT: ASKED BUT UNKNOWN
     Route: 058
  129. SULFASALAZINE [Suspect]
     Active Substance: SULFASALAZINE
     Indication: Rheumatoid arthritis
     Dosage: DOSE FREQUENCY: ASKED BUT UNKNOWN?FORMAT: ASKED BUT UNKNOWN
     Route: 058
  130. DESOGESTREL\ETHINYL ESTRADIOL [Concomitant]
     Active Substance: DESOGESTREL\ETHINYL ESTRADIOL
     Indication: Product used for unknown indication
  131. ACETAMINOPHEN\TRAMADOL [Suspect]
     Active Substance: ACETAMINOPHEN\TRAMADOL
     Indication: Product used for unknown indication
     Dosage: FREQ, THERAPY DURATION AND INDICATION: ASKED BUT UNKNOWN

REACTIONS (4)
  - Condition aggravated [Fatal]
  - Maternal exposure during pregnancy [Unknown]
  - Overlap syndrome [Fatal]
  - Off label use [Unknown]
